FAERS Safety Report 5871648-2 (Version None)
Quarter: 2008Q3

REPORT INFORMATION
  Report Type: 
  Country: None (occurrence: None)
  Receive Date: 20080905
  Receipt Date: 20080827
  Transmission Date: 20090109
  Serious: Yes (Other)
  Sender: FDA-Public Use
  Company Number: US-JNJFOC-20080806491

PATIENT
  Sex: Male
  Weight: 111.13 kg

DRUGS (6)
  1. DURAGESIC-100 [Suspect]
     Route: 062
  2. DURAGESIC-100 [Suspect]
     Indication: BACK PAIN
     Route: 062
  3. TOPAMAX [Suspect]
     Indication: FIBROMYALGIA
     Route: 048
  4. WELLBUTRIN SR [Concomitant]
     Indication: DEPRESSION
     Route: 048
  5. VALIUM [Concomitant]
     Indication: ANXIETY
     Route: 048
  6. OXYCODONE HCL [Concomitant]
     Indication: BREAKTHROUGH PAIN

REACTIONS (8)
  - BACK PAIN [None]
  - FALL [None]
  - FEELING JITTERY [None]
  - FIBROMYALGIA [None]
  - INCORRECT DRUG ADMINISTRATION DURATION [None]
  - PAIN IN EXTREMITY [None]
  - WEIGHT DECREASED [None]
  - WRONG TECHNIQUE IN DRUG USAGE PROCESS [None]
